FAERS Safety Report 9487121 (Version 1)
Quarter: 2013Q3

REPORT INFORMATION
  Report Type: Spontaneous
  Country: US (occurrence: US)
  Receive Date: 20130829
  Receipt Date: 20130829
  Transmission Date: 20140515
  Serious: Yes (Death, Other)
  Sender: FDA-Public Use
  Company Number: US-ELI_LILLY_AND_COMPANY-US201308006291

PATIENT
  Age: 35 Year
  Sex: Male

DRUGS (2)
  1. STRATTERA [Suspect]
     Dosage: UNK, UNKNOWN
     Route: 065
     Dates: start: 201303
  2. STRATTERA [Suspect]
     Dosage: 80 MG, QD

REACTIONS (5)
  - Death [Fatal]
  - Convulsion [Unknown]
  - Drug abuser [Unknown]
  - Struck by lightning [Unknown]
  - Withdrawal syndrome [Unknown]
